FAERS Safety Report 17101543 (Version 1)
Quarter: 2019Q4

REPORT INFORMATION
  Report Type: Spontaneous
  Country: PL (occurrence: PL)
  Receive Date: 20191202
  Receipt Date: 20191202
  Transmission Date: 20200122
  Serious: Yes (Other)
  Sender: FDA-Public Use
  Company Number: PL-MYLANLABS-2019M1118183

PATIENT
  Age: 34 Year
  Sex: Male

DRUGS (5)
  1. ALPRAZOLAM. [Suspect]
     Active Substance: ALPRAZOLAM
     Indication: STRESS
     Dosage: 6 MILLIGRAM, QD
     Route: 065
  2. CITALOPRAM [Concomitant]
     Active Substance: CITALOPRAM HYDROBROMIDE
     Indication: ADJUSTMENT DISORDER WITH DEPRESSED MOOD
     Dosage: UNK
     Route: 065
  3. PERAZINE [Concomitant]
     Active Substance: PERAZINE
     Indication: ADJUSTMENT DISORDER WITH DEPRESSED MOOD
     Dosage: UNK
     Route: 065
  4. ALPRAZOLAM. [Suspect]
     Active Substance: ALPRAZOLAM
     Indication: ADJUSTMENT DISORDER WITH DEPRESSED MOOD
     Dosage: INCREASING DOSES
     Route: 065
  5. MIANSERIN [Concomitant]
     Active Substance: MIANSERIN
     Indication: ADJUSTMENT DISORDER WITH DEPRESSED MOOD
     Dosage: UNK
     Route: 065

REACTIONS (7)
  - Drug dependence [Recovering/Resolving]
  - Dyspnoea [Recovered/Resolved]
  - Tinnitus [Unknown]
  - Anxiety [Recovered/Resolved]
  - Panic attack [Unknown]
  - Hypertension [Unknown]
  - Sleep disorder [Unknown]
